FAERS Safety Report 18758038 (Version 1)
Quarter: 2021Q1

REPORT INFORMATION
  Report Type: Spontaneous
  Country: BR (occurrence: BR)
  Receive Date: 20210119
  Receipt Date: 20210119
  Transmission Date: 20210419
  Serious: Yes (Other)
  Sender: FDA-Public Use
  Company Number: BR-ASTRAZENECA-2021A006269

PATIENT
  Sex: Female

DRUGS (3)
  1. DESD [Concomitant]
     Indication: ANXIETY
     Dosage: 50.0MG UNKNOWN
  2. RIVOTRIL [Concomitant]
     Active Substance: CLONAZEPAM
     Indication: ANXIETY
     Dosage: 2 MG AT NIGHT HALF A TABLET
  3. SYMBICORT [Suspect]
     Active Substance: BUDESONIDE\FORMOTEROL FUMARATE DIHYDRATE
     Dosage: 320/9 MCG EVERY 12 HOURS
     Route: 055
     Dates: start: 201901

REACTIONS (3)
  - Product administration error [Unknown]
  - Asthmatic crisis [Not Recovered/Not Resolved]
  - Drug ineffective [Unknown]

NARRATIVE: CASE EVENT DATE: 20210110
